FAERS Safety Report 18174580 (Version 1)
Quarter: 2020Q3

REPORT INFORMATION
  Report Type: Spontaneous
  Country: US (occurrence: US)
  Receive Date: 20200820
  Receipt Date: 20200820
  Transmission Date: 20201103
  Serious: No
  Sender: FDA-Public Use
  Company Number: US-PFIZER INC-2020317068

PATIENT
  Age: 61 Year
  Sex: Female
  Weight: 58.51 kg

DRUGS (2)
  1. ALPRAZOLAM. [Suspect]
     Active Substance: ALPRAZOLAM
     Indication: ANXIETY
     Dosage: 3 MG ONCE EVERY 24 HOURS
  2. SYNTHROID [Concomitant]
     Active Substance: LEVOTHYROXINE SODIUM
     Indication: HYPOTHYROIDISM
     Dosage: 100 UG, 1X/DAY

REACTIONS (9)
  - Cardiac disorder [Unknown]
  - Hypoaesthesia oral [Unknown]
  - Mouth ulceration [Unknown]
  - Heart rate increased [Unknown]
  - Palpitations [Unknown]
  - Pain [Unknown]
  - Chest pain [Unknown]
  - Chest discomfort [Unknown]
  - Headache [Unknown]
